FAERS Safety Report 6171862-5 (Version None)
Quarter: 2009Q2

REPORT INFORMATION
  Report Type: 
  Country: None (occurrence: None)
  Receive Date: 20090428
  Receipt Date: 20090428
  Transmission Date: 20091009
  Serious: Yes (Disabling)
  Sender: FDA-Public Use
  Company Number: None

PATIENT
  Sex: Female
  Weight: 77.1115 kg

DRUGS (1)
  1. CHANTIX [Suspect]
     Indication: SMOKING CESSATION THERAPY
     Dosage: .05 MG FIRST FEW DAYS ORAL; 1.71 MG THEREAFTER ORAL
     Route: 048
     Dates: start: 20090301

REACTIONS (7)
  - ABNORMAL DREAMS [None]
  - DYSGEUSIA [None]
  - FATIGUE [None]
  - HEADACHE [None]
  - MALAISE [None]
  - NAUSEA [None]
  - TINNITUS [None]
